FAERS Safety Report 22075072 (Version 3)
Quarter: 2024Q1

REPORT INFORMATION
  Report Type: Report from Study
  Country: EG (occurrence: EG)
  Receive Date: 20230308
  Receipt Date: 20240301
  Transmission Date: 20240409
  Serious: Yes (Other)
  Sender: FDA-Public Use
  Company Number: EG-002147023-NVSC2023EG042388

PATIENT
  Age: 36 Year
  Sex: Male

DRUGS (9)
  1. LEQVIO [Suspect]
     Active Substance: INCLISIRAN SODIUM
     Indication: Hypercholesterolaemia
     Dosage: UNK UNK, ONCE/SINGLE
     Route: 058
     Dates: start: 20221116
  2. LEQVIO [Suspect]
     Active Substance: INCLISIRAN SODIUM
     Dosage: UNK (THE NEXT AFTER 3 MONTHS)
     Route: 058
     Dates: start: 20230222
  3. LEQVIO [Suspect]
     Active Substance: INCLISIRAN SODIUM
     Dosage: 1 DOSAGE FORM (EVERY 6 MONTHS)
     Route: 058
  4. TICAGRELOR [Concomitant]
     Active Substance: TICAGRELOR
     Indication: Anticoagulant therapy
     Dosage: UNK, BID, (ONE MONTH AGO)
     Route: 048
  5. VASTRIL [Concomitant]
     Indication: Cardiac hypertrophy
     Dosage: UNK, BID, (ONE MONTH AGO)
     Route: 048
  6. VASTRIL [Concomitant]
     Indication: Angina pectoris
  7. ASPIRIN [Concomitant]
     Active Substance: ASPIRIN
     Indication: Anticoagulant therapy
     Dosage: UNK, QD
     Route: 048
     Dates: start: 2017
  8. METOPROLOL TARTRATE [Concomitant]
     Active Substance: METOPROLOL TARTRATE
     Indication: Heart rate irregular
     Dosage: UNK, BID, (TWO WEEKS AGO)
     Route: 048
  9. CHOLETIMB [Concomitant]
     Indication: Hypercholesterolaemia
     Dosage: UNK, QD, ONE MONTH AGO, INCONSISTENTLY
     Route: 048

REACTIONS (11)
  - Hypertension [Recovered/Resolved]
  - Dyspnoea [Recovered/Resolved]
  - Dizziness [Not Recovered/Not Resolved]
  - Headache [Not Recovered/Not Resolved]
  - Heart rate increased [Not Recovered/Not Resolved]
  - Arterial stenosis [Recovered/Resolved]
  - Hypertension [Recovered/Resolved]
  - Device occlusion [Recovered/Resolved]
  - Myalgia [Unknown]
  - Blood triglycerides increased [Unknown]
  - Weight increased [Unknown]

NARRATIVE: CASE EVENT DATE: 20221116
